FAERS Safety Report 5056608-6 (Version None)
Quarter: 2006Q2

REPORT INFORMATION
  Report Type: 
  Country: None (occurrence: None)
  Receive Date: 20060616
  Receipt Date: 20060516
  Transmission Date: 20061013
  Serious: No
  Sender: FDA-Public Use
  Company Number: 2006US000695

PATIENT
  Age: 58 Year
  Sex: Male
  Weight: 108.8 kg

DRUGS (1)
  1. VESICARE [Suspect]
     Indication: DRUG USE FOR UNKNOWN INDICATION
     Dosage: BID, ORAL
     Route: 048
     Dates: start: 20060324

REACTIONS (1)
  - POLLAKIURIA [None]
